FAERS Safety Report 23948450 (Version 24)
Quarter: 2024Q4

REPORT INFORMATION
  Report Type: Report from Study
  Country: AU (occurrence: AU)
  Receive Date: 20240607
  Receipt Date: 20241218
  Transmission Date: 20250115
  Serious: Yes (Hospitalization, Other)
  Sender: JOHNSON AND JOHNSON
  Company Number: AU-JNJFOC-20240513599

PATIENT
  Age: 66 Year
  Sex: Female
  Weight: 68 kg

DRUGS (24)
  1. SELEXIPAG [Suspect]
     Active Substance: SELEXIPAG
     Indication: Pulmonary hypertension
     Route: 048
     Dates: start: 20211101
  2. MACITENTAN [Suspect]
     Active Substance: MACITENTAN
     Indication: Pulmonary hypertension
     Route: 048
     Dates: start: 20211101
  3. SPIRONOLACTONE [Suspect]
     Active Substance: SPIRONOLACTONE
     Indication: Fluid retention
     Route: 048
  4. TRAMADOL [Concomitant]
     Active Substance: TRAMADOL
     Route: 048
  5. NASONEX [Concomitant]
     Active Substance: MOMETASONE FUROATE
  6. GASTROSTOP [Concomitant]
     Indication: Diarrhoea
  7. VALIUM [Concomitant]
     Active Substance: DIAZEPAM
     Indication: Anxiety
     Route: 048
  8. VALIUM [Concomitant]
     Active Substance: DIAZEPAM
     Indication: Headache
  9. BUTYLSCOPOLAMINE BROMIDE [Concomitant]
     Active Substance: BUTYLSCOPOLAMINE BROMIDE
     Indication: Abdominal pain
     Route: 048
  10. ADCIRCA [Concomitant]
     Active Substance: TADALAFIL
     Indication: Pulmonary hypertension
     Route: 048
  11. DIGOXIN [Concomitant]
     Active Substance: DIGOXIN
     Indication: Cardiac failure
  12. PREDNISONE [Concomitant]
     Active Substance: PREDNISONE
     Route: 048
  13. NEXIUM [Concomitant]
     Active Substance: ESOMEPRAZOLE MAGNESIUM
     Indication: Gastrooesophageal reflux disease
     Route: 048
  14. MONTELUKAST [Concomitant]
     Active Substance: MONTELUKAST SODIUM
     Indication: Scleroderma
     Route: 048
  15. MONTELUKAST [Concomitant]
     Active Substance: MONTELUKAST SODIUM
     Indication: Bronchospasm
  16. FUROSEMIDE [Concomitant]
     Active Substance: FUROSEMIDE
     Indication: Fluid retention
     Route: 048
  17. FENTANYL [Concomitant]
     Active Substance: FENTANYL
     Indication: Peptic ulcer
     Dosage: 25 MCG CHANGED EVERY 72 HOURS
     Route: 062
  18. MEGA MAGNESIUM [CHROMIC CHLORIDE;MAGNESIUM AMINO ACID CHELATE;MAGNESIU [Concomitant]
     Route: 048
  19. BROMHEXINE HYDROCHLORIDE [Concomitant]
     Active Substance: BROMHEXINE HYDROCHLORIDE
     Indication: Bronchospasm
     Route: 048
  20. ERGOCALCIFEROL [Concomitant]
     Active Substance: ERGOCALCIFEROL
     Route: 048
  21. ACETAMINOPHEN [Concomitant]
     Active Substance: ACETAMINOPHEN
     Indication: Pain
     Route: 048
  22. MIRCERA [Concomitant]
     Active Substance: METHOXY POLYETHYLENE GLYCOL-EPOETIN BETA
     Indication: Anaemia
     Dosage: EVERY 3 WEEKS
     Route: 058
  23. OXYGEN [Concomitant]
     Active Substance: OXYGEN
     Indication: Sleep apnoea syndrome
  24. PREDNISOLONE [Concomitant]
     Active Substance: PREDNISOLONE

REACTIONS (21)
  - Hospitalisation [Unknown]
  - Gait disturbance [Recovering/Resolving]
  - Infectious mononucleosis [Recovering/Resolving]
  - Hypervolaemia [Recovered/Resolved with Sequelae]
  - Peripheral swelling [Recovered/Resolved]
  - Migraine [Recovered/Resolved]
  - Hypotension [Not Recovered/Not Resolved]
  - Lower respiratory tract infection [Not Recovered/Not Resolved]
  - Feeling abnormal [Not Recovered/Not Resolved]
  - Malaise [Unknown]
  - Treatment noncompliance [Unknown]
  - Fatigue [Not Recovered/Not Resolved]
  - Blood pressure fluctuation [Not Recovered/Not Resolved]
  - Hypersomnia [Not Recovered/Not Resolved]
  - Urine output decreased [Unknown]
  - Diarrhoea [Not Recovered/Not Resolved]
  - Nausea [Recovered/Resolved]
  - Heart rate increased [Not Recovered/Not Resolved]
  - Dyspnoea [Not Recovered/Not Resolved]
  - Pain [Not Recovered/Not Resolved]
  - Dizziness [Not Recovered/Not Resolved]

NARRATIVE: CASE EVENT DATE: 20211101
